FAERS Safety Report 16156930 (Version 2)
Quarter: 2019Q2

REPORT INFORMATION
  Report Type: Spontaneous
  Country: US (occurrence: US)
  Receive Date: 20190404
  Receipt Date: 20190430
  Transmission Date: 20190711
  Serious: Yes (Hospitalization, Other)
  Sender: FDA-Public Use
  Company Number: US-009507513-1904USA001880

PATIENT
  Age: 38 Year
  Sex: Male
  Weight: 58.8 kg

DRUGS (3)
  1. KEYTRUDA [Suspect]
     Active Substance: PEMBROLIZUMAB
     Indication: NON-SMALL CELL LUNG CANCER
     Dosage: 200 MILLIGRAM, Q3W
     Dates: start: 20190201, end: 20190315
  2. PACLITAXEL. [Concomitant]
     Active Substance: PACLITAXEL
     Indication: LUNG SQUAMOUS CELL CARCINOMA STAGE IV
     Dosage: 300 MILLIGRAM, Q3W
     Route: 042
     Dates: start: 20190201, end: 20190315
  3. CARBOPLATIN. [Concomitant]
     Active Substance: CARBOPLATIN
     Indication: LUNG SQUAMOUS CELL CARCINOMA STAGE IV
     Dosage: 700 MILLIGRAM, Q3W
     Route: 042
     Dates: start: 20190201, end: 20190315

REACTIONS (12)
  - Pancreatitis [Unknown]
  - Sinus tachycardia [Unknown]
  - Type 1 diabetes mellitus [Recovering/Resolving]
  - Xanthopsia [Recovered/Resolved]
  - Weight increased [Unknown]
  - Hiccups [Unknown]
  - Graft versus host disease in gastrointestinal tract [Recovered/Resolved]
  - Hepatic steatosis [Unknown]
  - Diabetic ketoacidosis [Recovered/Resolved]
  - Haematocrit decreased [Unknown]
  - Platelet count decreased [Unknown]
  - Hypertension [Unknown]

NARRATIVE: CASE EVENT DATE: 20190316
